FAERS Safety Report 14169395 (Version 2)
Quarter: 2017Q4

REPORT INFORMATION
  Report Type: Report from Study
  Country: CA (occurrence: CA)
  Receive Date: 20171108
  Receipt Date: 20171108
  Transmission Date: 20180321
  Serious: Yes (Other)
  Sender: FDA-Public Use
  Company Number: PHHY2017CA163332

PATIENT
  Age: 60 Year
  Sex: Female

DRUGS (1)
  1. CICLOSPORIN [Suspect]
     Active Substance: CYCLOSPORINE
     Indication: PRODUCT USED FOR UNKNOWN INDICATION
     Route: 065

REACTIONS (6)
  - Pain [Unknown]
  - Memory impairment [Unknown]
  - Seizure [Unknown]
  - Road traffic accident [Unknown]
  - Psoriasis [Unknown]
  - Epilepsy [Unknown]

NARRATIVE: CASE EVENT DATE: 20171101
